FAERS Safety Report 5005193-3 (Version None)
Quarter: 2006Q2

REPORT INFORMATION
  Report Type: 
  Country: None (occurrence: None)
  Receive Date: 20060518
  Receipt Date: 20060512
  Transmission Date: 20061013
  Serious: Yes (Death, Hospitalization)
  Sender: FDA-Public Use
  Company Number: 2006GB00830

PATIENT
  Age: 66 Year
  Sex: Male
  Weight: 112 kg

DRUGS (8)
  1. MEROPENEM [Suspect]
     Indication: NEUTROPENIC SEPSIS
     Route: 042
     Dates: start: 20060305
  2. ZEVALIN [Suspect]
     Indication: NON-HODGKIN'S LYMPHOMA STAGE IV
     Route: 042
     Dates: start: 20060209, end: 20060209
  3. YTTRIUM-90 [Suspect]
     Indication: NON-HODGKIN'S LYMPHOMA STAGE IV
     Route: 042
     Dates: start: 20060209, end: 20060209
  4. RITUXIMAB [Suspect]
     Indication: NON-HODGKIN'S LYMPHOMA STAGE IV
     Route: 065
     Dates: start: 20050601
  5. RITUXIMAB [Suspect]
     Route: 065
     Dates: start: 20060209, end: 20060209
  6. CEFTAZIDIME [Suspect]
     Indication: NEUTROPENIC SEPSIS
     Route: 042
     Dates: start: 20060310, end: 20060317
  7. CEFTAZIDIME [Suspect]
     Route: 042
     Dates: start: 20060321
  8. CIPROFLOXACIN [Suspect]
     Indication: NEUTROPENIC SEPSIS
     Route: 042
     Dates: start: 20060317

REACTIONS (2)
  - NEUTROPENIC SEPSIS [None]
  - STEVENS-JOHNSON SYNDROME [None]
